FAERS Safety Report 6588061-5 (Version None)
Quarter: 2010Q1

REPORT INFORMATION
  Report Type: 
  Country: None (occurrence: None)
  Receive Date: 20100218
  Receipt Date: 20100205
  Transmission Date: 20100710
  Serious: Yes (Other)
  Sender: FDA-Public Use
  Company Number: PHHY2010FI06606

PATIENT
  Sex: Male

DRUGS (1)
  1. VOLTAREN [Suspect]
     Indication: PAIN
     Dosage: ONE TABLET 75 MG ONE TO TWICE DAILY
     Route: 048
     Dates: end: 20091023

REACTIONS (1)
  - FEMUR FRACTURE [None]
